FAERS Safety Report 5888095-X (Version None)
Quarter: 2008Q3

REPORT INFORMATION
  Report Type: 
  Country: None (occurrence: None)
  Receive Date: 20080918
  Receipt Date: 20080910
  Transmission Date: 20090109
  Serious: Yes (Other)
  Sender: FDA-Public Use
  Company Number: DE-MERCK-0809DEU00024

PATIENT
  Age: 6 Year
  Sex: Female
  Weight: 28 kg

DRUGS (2)
  1. SINGULAIR [Suspect]
     Indication: OBSTRUCTIVE AIRWAYS DISORDER
     Route: 048
     Dates: start: 20080121, end: 20080617
  2. SINGULAIR [Suspect]
     Indication: ASTHMA
     Route: 048
     Dates: start: 20080121, end: 20080617

REACTIONS (3)
  - FEELING JITTERY [None]
  - HEADACHE [None]
  - RESTLESSNESS [None]
